FAERS Safety Report 5384251-8 (Version None)
Quarter: 2007Q3

REPORT INFORMATION
  Report Type: 
  Country: None (occurrence: None)
  Receive Date: 20070703
  Receipt Date: 20061030
  Transmission Date: 20080115
  Serious: Yes (Hospitalization)
  Sender: FDA-Public Use
  Company Number: 2006-BP-02487BP

PATIENT
  Age: 53 Year
  Sex: Male

DRUGS (18)
  1. MIRAPEX [Suspect]
     Indication: PARKINSON'S DISEASE
     Dosage: 0.25 MG (0.125 MG,2 IN 1 D),PO
     Route: 048
     Dates: start: 19981001, end: 20051101
  2. MIRAPEX [Suspect]
     Indication: RESTLESS LEGS SYNDROME
     Dosage: 0.25 MG (0.125 MG,2 IN 1 D),PO
     Route: 048
     Dates: start: 19981001, end: 20051101
  3. SINEMET CR [Suspect]
     Indication: PARKINSON'S DISEASE
     Dosage: SEE IMAGE
     Route: 048
     Dates: start: 20040101, end: 20050101
  4. PRAVACHOL [Concomitant]
  5. MONOPRIL [Concomitant]
  6. LOPRESSOR [Concomitant]
  7. ASCORBIC ACID [Concomitant]
  8. LIPITOR [Concomitant]
  9. ZESTRIL [Concomitant]
  10. ASCORBIC ACID [Concomitant]
  11. ATACAND [Concomitant]
  12. DIOVAN [Concomitant]
  13. FLUZONE [Concomitant]
  14. IBUPROFEN [Concomitant]
  15. FLUOXETINE [Concomitant]
  16. RISPERDAL [Concomitant]
  17. LASIX [Concomitant]
  18. REQUIP [Suspect]
     Indication: PARKINSON'S DISEASE
     Dosage: 9 MG (3MG, 1 IN 1 D)
     Dates: start: 20050801

REACTIONS (6)
  - ANXIETY [None]
  - DEPRESSION [None]
  - HALLUCINATION [None]
  - OBSESSIVE-COMPULSIVE DISORDER [None]
  - PATHOLOGICAL GAMBLING [None]
  - SUICIDAL IDEATION [None]
